FAERS Safety Report 13561629 (Version 4)
Quarter: 2019Q2

REPORT INFORMATION
  Report Type: Report from Study
  Country: US (occurrence: US)
  Receive Date: 20170518
  Receipt Date: 20190513
  Transmission Date: 20190711
  Serious: Yes (Hospitalization)
  Sender: FDA-Public Use
  Company Number: US-ACTELION-A-US2017-151125

PATIENT
  Age: 84 Year
  Sex: Female
  Weight: 81.63 kg

DRUGS (4)
  1. OXYGEN. [Concomitant]
     Active Substance: OXYGEN
  2. AMLODIPINE [Concomitant]
     Active Substance: AMLODIPINE BESYLATE
  3. XARELTO [Concomitant]
     Active Substance: RIVAROXABAN
  4. OPSUMIT [Suspect]
     Active Substance: MACITENTAN
     Indication: PULMONARY HYPERTENSION
     Dosage: 10 MG, QD
     Route: 048
     Dates: start: 20160524

REACTIONS (10)
  - Sinus pain [Unknown]
  - Cough [Unknown]
  - Decreased activity [Unknown]
  - Headache [Unknown]
  - Atrial fibrillation [Unknown]
  - Pneumonia [Unknown]
  - Visual impairment [Unknown]
  - Cardiac pacemaker insertion [Unknown]
  - Bradycardia [Unknown]
  - Dyspnoea [Unknown]

NARRATIVE: CASE EVENT DATE: 20190110
